FAERS Safety Report 7244255-7 (Version None)
Quarter: 2011Q1

REPORT INFORMATION
  Report Type: 
  Country: None (occurrence: None)
  Receive Date: 20110119
  Receipt Date: 20110119
  Transmission Date: 20110831
  Serious: Yes (Other)
  Sender: FDA-Public Use
  Company Number: None

PATIENT
  Sex: Female
  Weight: 71.8 kg

DRUGS (1)
  1. LANTUS SOLOSTAR INSULIN PER (GLARGINE) 100 UNITS/CC 3 CC PEN SANOFI-AV [Suspect]
     Indication: TYPE 2 DIABETES MELLITUS
     Dosage: 60 UNITS QHS SUBCUTANEOUS
     Route: 058
     Dates: start: 20110109

REACTIONS (6)
  - PRURITUS [None]
  - FEELING ABNORMAL [None]
  - ERYTHEMA [None]
  - BLOOD GLUCOSE INCREASED [None]
  - SKIN BURNING SENSATION [None]
  - BLOOD PRESSURE SYSTOLIC INCREASED [None]
